FAERS Safety Report 8358204-1 (Version None)
Quarter: 2012Q2

REPORT INFORMATION
  Report Type: 
  Country: None (occurrence: None)
  Receive Date: 20120514
  Receipt Date: 20120504
  Transmission Date: 20120825
  Serious: Yes (Hospitalization, Congenital Anomaly)
  Sender: FDA-Public Use
  Company Number: US-GLAXOSMITHKLINE-A0977202A

PATIENT
  Sex: Male

DRUGS (5)
  1. PAXIL [Suspect]
     Indication: DEPRESSION
     Route: 064
     Dates: start: 20040401
  2. DARVOCET [Concomitant]
  3. MULTI-VITAMINS [Concomitant]
  4. ANTIBIOTIC [Concomitant]
  5. HYDROCODONE BITARTRATE [Concomitant]

REACTIONS (3)
  - CLEFT LIP AND PALATE [None]
  - VISUAL ACUITY REDUCED [None]
  - FOETAL EXPOSURE DURING PREGNANCY [None]
